FAERS Safety Report 6141685-1 (Version None)
Quarter: 2009Q1

REPORT INFORMATION
  Report Type: 
  Country: None (occurrence: None)
  Receive Date: 20090331
  Receipt Date: 20090331
  Transmission Date: 20090719
  Serious: Yes (Life-Threatening, Hospitalization)
  Sender: FDA-Public Use
  Company Number: None

PATIENT
  Sex: Female
  Weight: 50.3493 kg

DRUGS (1)
  1. HALDOL [Suspect]
     Indication: SLEEP DISORDER THERAPY
     Dates: start: 20090320, end: 20090320

REACTIONS (6)
  - AGITATION [None]
  - DISORIENTATION [None]
  - INSOMNIA [None]
  - MEMORY IMPAIRMENT [None]
  - TREATMENT NONCOMPLIANCE [None]
  - VISUAL ACUITY REDUCED [None]
